FAERS Safety Report 13435909 (Version 2)
Quarter: 2017Q2

REPORT INFORMATION
  Report Type: Spontaneous
  Country: CH (occurrence: CH)
  Receive Date: 20170413
  Receipt Date: 20170420
  Transmission Date: 20170830
  Serious: Yes (Other)
  Sender: FDA-Public Use
  Company Number: CH-PFIZER INC-2017146133

PATIENT
  Sex: Female

DRUGS (1)
  1. LYRICA [Suspect]
     Active Substance: PREGABALIN
     Indication: HERPES ZOSTER
     Dosage: 75 MG, 2X/DAY
     Route: 048

REACTIONS (9)
  - Fear [Unknown]
  - Fatigue [Unknown]
  - Feeling drunk [Unknown]
  - Diplopia [Unknown]
  - Speech disorder [Unknown]
  - Tunnel vision [Unknown]
  - Micturition frequency decreased [Unknown]
  - Feeling abnormal [Unknown]
  - Anuria [Unknown]
